FAERS Safety Report 4420527-6 (Version None)
Quarter: 2004Q3

REPORT INFORMATION
  Report Type: 
  Country: None (occurrence: None)
  Receive Date: 20040809
  Receipt Date: 20040323
  Transmission Date: 20050211
  Serious: No
  Sender: FDA-Public Use
  Company Number: US-GLAXOSMITHKLINE-A0504107A

PATIENT
  Age: 28 Year
  Sex: Male

DRUGS (1)
  1. PAXIL CR [Suspect]
     Dosage: 12.5MG PER DAY
     Route: 048
     Dates: start: 20040223

REACTIONS (4)
  - DEPRESSION [None]
  - LIBIDO DECREASED [None]
  - LIBIDO INCREASED [None]
  - SEXUAL DYSFUNCTION [None]
